FAERS Safety Report 9654411 (Version 1)
Quarter: 2013Q4

REPORT INFORMATION
  Report Type: Spontaneous
  Country: US (occurrence: None)
  Receive Date: 20131022
  Receipt Date: 20131022
  Transmission Date: 20140711
  Serious: Yes (Hospitalization, Other)
  Sender: FDA-Public Use
  Company Number: 2013038477

PATIENT
  Sex: Female
  Weight: 36 kg

DRUGS (5)
  1. HIZENTRA [Suspect]
     Dosage: 2G  1X/WEEK , 2GM 10 ML VIAL; 1-4 SITES OVER 1-2 HOURS SUBCUTANEOUS)
  2. DIPHENHYDRAMINE [Concomitant]
  3. IBUPROFEN [Concomitant]
  4. LIDOCAINE PRILOCAINE [Concomitant]
  5. EPIPEN JR (EPINEPHRINE HYDROCHLORIDE) [Concomitant]

REACTIONS (1)
  - Convulsion [None]
